FAERS Safety Report 7215139-5 (Version None)
Quarter: 2011Q1

REPORT INFORMATION
  Report Type: 
  Country: None (occurrence: None)
  Receive Date: 20110107
  Receipt Date: 20100903
  Transmission Date: 20110831
  Serious: No
  Sender: FDA-Public Use
  Company Number: A0880353A

PATIENT

DRUGS (2)
  1. LOVAZA [Suspect]
     Route: 048
  2. RENVELA [Suspect]
     Route: 065

REACTIONS (2)
  - BLOOD PHOSPHORUS INCREASED [None]
  - DRUG INTERACTION [None]
